FAERS Safety Report 5662652-8 (Version None)
Quarter: 2008Q1

REPORT INFORMATION
  Report Type: 
  Country: None (occurrence: None)
  Receive Date: 20080313
  Receipt Date: 20080305
  Transmission Date: 20080703
  Serious: Yes (Other)
  Sender: FDA-Public Use
  Company Number: GB-ROCHE-551913

PATIENT
  Age: 51 Year
  Sex: Female
  Weight: 90.2 kg

DRUGS (4)
  1. ORLISTAT [Suspect]
     Indication: OBESITY
     Route: 048
     Dates: start: 20071004
  2. LISINOPRIL [Concomitant]
     Indication: BLOOD PRESSURE
     Route: 048
  3. DIHYDROCODEINE [Concomitant]
     Route: 048
     Dates: start: 20071118
  4. ACETAMINOPHEN [Concomitant]
     Route: 048
     Dates: start: 20071118

REACTIONS (1)
  - DEEP VEIN THROMBOSIS [None]
